FAERS Safety Report 8993422 (Version 1)
Quarter: 2013Q1

REPORT INFORMATION
  Report Type: Spontaneous
  Country: IT (occurrence: IT)
  Receive Date: 20130102
  Receipt Date: 20130102
  Transmission Date: 20140127
  Serious: Yes (Other)
  Sender: FDA-Public Use
  Company Number: IT-TEVA-377857ISR

PATIENT
  Age: 70 Year
  Sex: Male

DRUGS (5)
  1. FLUOXETINE [Suspect]
     Indication: ANXIETY
     Dosage: 20 MILLIGRAM DAILY;
     Route: 048
     Dates: start: 20121213, end: 20121213
  2. TAVOR [Suspect]
     Indication: ANXIETY
     Dosage: 8 DOSAGE FORMS DAILY;
     Route: 048
     Dates: start: 20121213, end: 20121213
  3. CARDIOASPIRIN [Concomitant]
  4. ONCO CARBIDE [Concomitant]
  5. GLICLAZIDE [Concomitant]

REACTIONS (2)
  - Drug abuse [Recovering/Resolving]
  - Presyncope [Recovering/Resolving]
